FAERS Safety Report 15371843 (Version 3)
Quarter: 2018Q3

REPORT INFORMATION
  Report Type: Spontaneous
  Country: US (occurrence: US)
  Receive Date: 20180911
  Receipt Date: 20180921
  Transmission Date: 20181010
  Serious: No
  Sender: FDA-Public Use
  Company Number: US-PFIZER INC-2016514507

PATIENT
  Age: 70 Year
  Sex: Male
  Weight: 104 kg

DRUGS (2)
  1. LYRICA [Suspect]
     Active Substance: PREGABALIN
     Indication: NEUROPATHY PERIPHERAL
     Dosage: 200 MG, 2X/DAY [1 PILL TWICE DAILY]
  2. LYRICA [Suspect]
     Active Substance: PREGABALIN
     Dosage: 200 MG, 3X/DAY
     Route: 048

REACTIONS (14)
  - Diarrhoea [Unknown]
  - Depression [Unknown]
  - Condition aggravated [Not Recovered/Not Resolved]
  - Malaise [Unknown]
  - Night sweats [Unknown]
  - Pain [Unknown]
  - Fatigue [Unknown]
  - Insomnia [Unknown]
  - Decreased appetite [Unknown]
  - Chest discomfort [Unknown]
  - Drug dose omission [Not Recovered/Not Resolved]
  - Withdrawal syndrome [Not Recovered/Not Resolved]
  - Headache [Unknown]
  - Mental disorder [Unknown]
